FAERS Safety Report 16622781 (Version 1)
Quarter: 2019Q3

REPORT INFORMATION
  Report Type: Spontaneous
  Country: US (occurrence: US)
  Receive Date: 20190723
  Receipt Date: 20190723
  Transmission Date: 20191004
  Serious: Yes (Other)
  Sender: FDA-Public Use
  Company Number: US-OTSUKA-2019_018144

PATIENT
  Sex: Female

DRUGS (2)
  1. REXULTI [Suspect]
     Active Substance: BREXPIPRAZOLE
     Indication: DEPRESSION
     Dosage: LOW DOSE ONCE DAILY
     Route: 065
  2. LEXAPRO [Suspect]
     Active Substance: ESCITALOPRAM OXALATE
     Indication: DEPRESSION
     Dosage: UNK
     Route: 065

REACTIONS (12)
  - Urticaria [Recovered/Resolved]
  - Nervousness [Unknown]
  - Overdose [Unknown]
  - Therapy cessation [Unknown]
  - Dysphagia [Recovered/Resolved]
  - Anxiety [Unknown]
  - Hypersensitivity [Recovered/Resolved]
  - Tinnitus [Recovered/Resolved]
  - Insomnia [Unknown]
  - Pain [Not Recovered/Not Resolved]
  - Burning sensation [Recovered/Resolved]
  - Rash pruritic [Unknown]
